FAERS Safety Report 4902615-0 (Version None)
Quarter: 2006Q1

REPORT INFORMATION
  Report Type: 
  Country: None (occurrence: None)
  Receive Date: 20060207
  Receipt Date: 20060116
  Transmission Date: 20060701
  Serious: Yes (Death)
  Sender: FDA-Public Use
  Company Number: JP-BRISTOL-MYERS SQUIBB COMPANY-13248877

PATIENT
  Age: 65 Year
  Sex: Male

DRUGS (6)
  1. TAXOL [Suspect]
     Indication: LUNG NEOPLASM MALIGNANT
     Route: 041
     Dates: start: 20051213, end: 20051213
  2. GEMZAR [Suspect]
     Indication: LUNG NEOPLASM MALIGNANT
     Route: 041
     Dates: start: 20051213, end: 20051213
  3. CRAVIT [Suspect]
     Route: 048
     Dates: start: 20051223, end: 20051227
  4. RESPLEN [Suspect]
     Route: 048
     Dates: start: 20051223, end: 20051227
  5. MAGNESIUM OXIDE [Concomitant]
     Route: 048
     Dates: start: 20051212, end: 20051227
  6. CODEINE PHOSPHATE [Concomitant]
     Route: 048
     Dates: start: 20051212, end: 20051227

REACTIONS (1)
  - INTERSTITIAL LUNG DISEASE [None]
